FAERS Safety Report 8015953-2 (Version None)
Quarter: 2011Q4

REPORT INFORMATION
  Report Type: 
  Country: None (occurrence: None)
  Receive Date: 20111228
  Receipt Date: 20111228
  Transmission Date: 20120403
  Serious: Yes (Other)
  Sender: FDA-Public Use
  Company Number: None

PATIENT
  Sex: Male
  Weight: 86.4 kg

DRUGS (1)
  1. BYETTA [Suspect]
     Dosage: 10 MCG BID SC
     Route: 058

REACTIONS (7)
  - DIARRHOEA [None]
  - FLANK PAIN [None]
  - SUPRAPUBIC PAIN [None]
  - FAECES DISCOLOURED [None]
  - GASTROOESOPHAGEAL REFLUX DISEASE [None]
  - POLYURIA [None]
  - UNEVALUABLE EVENT [None]
